FAERS Safety Report 23557346 (Version 3)
Quarter: 2024Q2

REPORT INFORMATION
  Report Type: Spontaneous
  Country: US (occurrence: US)
  Receive Date: 20240223
  Receipt Date: 20240503
  Transmission Date: 20240715
  Serious: Yes (Other)
  Sender: FDA-Public Use
  Company Number: US-ABBVIE-5650863

PATIENT
  Sex: Female
  Weight: 81.646 kg

DRUGS (9)
  1. DIVALPROEX SODIUM [Suspect]
     Active Substance: DIVALPROEX SODIUM
     Indication: Epilepsy
     Dosage: TIME INTERVAL: 0.33333333 DAYS: DEPAKOTE EXTENDED RELEASE?FORM STRENGTH: 500 MILLIGRAM
     Route: 048
     Dates: start: 202306
  2. DIVALPROEX SODIUM [Suspect]
     Active Substance: DIVALPROEX SODIUM
     Indication: Epilepsy
     Dosage: TIME INTERVAL: 0.33333333 DAYS: FORM STRENGTH: 250 MILLIGRAM
     Route: 048
     Dates: start: 202303, end: 202306
  3. DIVALPROEX SODIUM [Suspect]
     Active Substance: DIVALPROEX SODIUM
     Indication: Epilepsy
     Dosage: TIME INTERVAL: 0.33333333 DAYS: FORM STRENGTH: 500 MILLIGRAM
     Route: 048
     Dates: start: 1983, end: 202303
  4. TOPAMAX [Concomitant]
     Active Substance: TOPIRAMATE
     Indication: Seizure
  5. FOLIC ACID [Concomitant]
     Active Substance: FOLIC ACID
     Indication: Product used for unknown indication
  6. LIPITOR [Concomitant]
     Active Substance: ATORVASTATIN CALCIUM
     Indication: Product used for unknown indication
     Dosage: FORM STRENGTH: 10 MILLIGRAM? FREQUENCY AT BEDTIME
  7. JANUVIA [Concomitant]
     Active Substance: SITAGLIPTIN PHOSPHATE
     Indication: Diabetes mellitus
  8. LEVOXYL [Concomitant]
     Active Substance: LEVOTHYROXINE SODIUM
     Indication: Thyroid disorder
     Dosage: FORM STRENGTH: 0.5 MILLIGRAM
  9. CLARITIN [Concomitant]
     Active Substance: LORATADINE
     Indication: Hypersensitivity
     Dosage: FREQUENCY: DAILY

REACTIONS (10)
  - Seizure [Recovered/Resolved]
  - Alopecia [Recovering/Resolving]
  - Vitamin B12 decreased [Recovered/Resolved]
  - Hypersomnia [Recovered/Resolved]
  - Overdose [Recovered/Resolved]
  - Gait disturbance [Recovered/Resolved]
  - Weight decreased [Recovered/Resolved]
  - Protein total decreased [Recovered/Resolved]
  - Ammonia increased [Recovered/Resolved]
  - Lethargy [Recovered/Resolved]

NARRATIVE: CASE EVENT DATE: 20230101
